FAERS Safety Report 18704737 (Version 2)
Quarter: 2021Q1

REPORT INFORMATION
  Report Type: Spontaneous
  Country: FR (occurrence: FR)
  Receive Date: 20210105
  Receipt Date: 20210115
  Transmission Date: 20210419
  Serious: Yes (Hospitalization, Other)
  Sender: FDA-Public Use
  Company Number: FR-BAXTER-2020BAX026976

PATIENT
  Age: 72 Year
  Sex: Female

DRUGS (8)
  1. RITUXIMAB. [Suspect]
     Active Substance: RITUXIMAB
     Indication: DIFFUSE LARGE B-CELL LYMPHOMA STAGE II
     Dosage: CONSOLIDATION TREATMENT
     Route: 065
     Dates: end: 201303
  2. ENDOXAN 1000 MG, POUDRE POUR SOLUTIONINJECTABLE [Suspect]
     Active Substance: CYCLOPHOSPHAMIDE
     Indication: DIFFUSE LARGE B-CELL LYMPHOMA STAGE II
     Dosage: AS A PART OF PMITCEBO REGIMEN, 6 (21 DAYS CYCLE)
     Route: 065
     Dates: start: 201212
  3. VINCRISTINE [Suspect]
     Active Substance: VINCRISTINE
     Indication: DIFFUSE LARGE B-CELL LYMPHOMA STAGE II
     Dosage: AS A PART OF PMITCEBO REGIMEN, 6 (21 DAYS CYCLE)
     Route: 065
     Dates: start: 201212
  4. BLEOMYCIN [Suspect]
     Active Substance: BLEOMYCIN SULFATE
     Indication: DIFFUSE LARGE B-CELL LYMPHOMA STAGE II
     Dosage: AS A PART OF PMITCEBO REGIMEN, 6 (21 DAYS CYCLE)
     Route: 065
     Dates: start: 201212
  5. CELLTOP 100 MG/5 ML, SOLUTION INJECTABLE POUR PERFUSION [Suspect]
     Active Substance: ETOPOSIDE
     Indication: DIFFUSE LARGE B-CELL LYMPHOMA STAGE II
     Dosage: AS A PART OF PMITCEBO REGIMEN, 6 (21 DAYS CYCLE)
     Route: 065
     Dates: start: 201212
  6. METHYLPREDNISOLONE. [Suspect]
     Active Substance: METHYLPREDNISOLONE
     Indication: DIFFUSE LARGE B-CELL LYMPHOMA STAGE II
     Dosage: AS A PART OF PMITCEBO REGIMEN, 6 (21 DAYS CYCLE)
     Route: 065
     Dates: start: 201212
  7. MITOXANTRONE [Suspect]
     Active Substance: MITOXANTRONE HYDROCHLORIDE
     Indication: DIFFUSE LARGE B-CELL LYMPHOMA STAGE II
     Dosage: AS A PART OF PMITCEBO REGIMEN, 6 (21 DAYS CYCLE)
     Route: 065
     Dates: start: 201212
  8. RITUXIMAB. [Suspect]
     Active Substance: RITUXIMAB
     Dosage: 6 (21 DAYS CYCLE)
     Route: 065
     Dates: start: 201212

REACTIONS (4)
  - Thrombocytopenia [Unknown]
  - B precursor type acute leukaemia [Recovering/Resolving]
  - Normocytic anaemia [Unknown]
  - Fall [Unknown]

NARRATIVE: CASE EVENT DATE: 2013
